FAERS Safety Report 23273890 (Version 2)
Quarter: 2024Q2

REPORT INFORMATION
  Report Type: Spontaneous
  Country: US (occurrence: US)
  Receive Date: 20231207
  Receipt Date: 20240422
  Transmission Date: 20240715
  Serious: Yes (Hospitalization, Other)
  Sender: FDA-Public Use
  Company Number: US-AstraZeneca-2023A112149

PATIENT
  Age: 14 Year
  Sex: Male

DRUGS (2)
  1. TAMOXIFEN [Suspect]
     Active Substance: TAMOXIFEN
     Indication: Gynaecomastia
     Dosage: 20 MILLIGRAM, ONCE A DAY
     Route: 065
  2. ANASTROZOLE [Suspect]
     Active Substance: ANASTROZOLE
     Indication: Gynaecomastia
     Dosage: UNK
     Route: 065

REACTIONS (3)
  - Haemorrhagic cyst [Recovered/Resolved]
  - Hermaphroditism [Recovered/Resolved]
  - Drug ineffective [Unknown]
